FAERS Safety Report 25508483 (Version 1)
Quarter: 2025Q3

REPORT INFORMATION
  Report Type: Spontaneous
  Country: CN (occurrence: CN)
  Receive Date: 20250703
  Receipt Date: 20250703
  Transmission Date: 20251020
  Serious: Yes (Hospitalization)
  Sender: ROCHE
  Company Number: CN-ROCHE-10000323600

PATIENT
  Age: 56 Year
  Sex: Female

DRUGS (5)
  1. HYALURONIDASE-ZZXF\PERTUZUMAB\TRASTUZUMAB [Suspect]
     Active Substance: HYALURONIDASE-ZZXF\PERTUZUMAB\TRASTUZUMAB
     Indication: Breast cancer
     Route: 042
     Dates: start: 20250610, end: 20250610
  2. DOCETAXEL [Suspect]
     Active Substance: DOCETAXEL
     Indication: Breast cancer
     Dosage: FIRST DOSE: 12-JUN-2025
     Route: 042
     Dates: end: 20250612
  3. 0.9% NS 250ml [Concomitant]
     Indication: Chemotherapy
     Route: 042
     Dates: start: 20250612, end: 20250612
  4. 0.9% Sodium Chloride Injection 100ml [Concomitant]
     Indication: Chemotherapy
     Route: 042
     Dates: start: 20250612, end: 20250612
  5. LEVOFLOXACIN [Concomitant]
     Active Substance: LEVOFLOXACIN

REACTIONS (4)
  - Myelosuppression [Recovering/Resolving]
  - Pyrexia [Unknown]
  - Chills [Unknown]
  - Diarrhoea [Unknown]

NARRATIVE: CASE EVENT DATE: 20250610
